FAERS Safety Report 4538256-7 (Version None)
Quarter: 2004Q4

REPORT INFORMATION
  Report Type: 
  Country: None (occurrence: None)
  Receive Date: 20041221
  Receipt Date: 20041206
  Transmission Date: 20050328
  Serious: Yes (Death, Life-Threatening, Hospitalization)
  Sender: FDA-Public Use
  Company Number: 105473ISR

PATIENT
  Age: 50 Year
  Sex: Male

DRUGS (4)
  1. FLUOROURACIL [Suspect]
     Dosage: INTRAVENOUS NOS
     Route: 042
     Dates: start: 20040301, end: 20040925
  2. ERBITUX (CETUXIMAB) [Suspect]
     Dosage: 400 MILLIGRAM, INTRAVENOUS NOS
     Route: 042
     Dates: start: 20040524, end: 20040909
  3. IRINOTECAN HYDROCHLORIDE [Suspect]
     Dosage: 160 MILLIGRAM, INTRAVENOUS NOS
     Route: 042
     Dates: start: 20040422, end: 20040925
  4. LEUCOVORIN CALCIUM [Suspect]
     Dosage: 640 MILLIGRAM, INTRAVENOUS NOS
     Route: 042
     Dates: start: 20040301, end: 20040923

REACTIONS (3)
  - BONE MARROW DEPRESSION [None]
  - FEBRILE NEUTROPENIA [None]
  - HISTIOCYTOSIS HAEMATOPHAGIC [None]
